FAERS Safety Report 7575044-1 (Version None)
Quarter: 2011Q2

REPORT INFORMATION
  Report Type: 
  Country: None (occurrence: None)
  Receive Date: 20110627
  Receipt Date: 20110620
  Transmission Date: 20111010
  Serious: Yes (Hospitalization)
  Sender: FDA-Public Use
  Company Number: PHHO2011BE10733

PATIENT
  Sex: Male
  Weight: 92 kg

DRUGS (2)
  1. EVEROLIMUS [Suspect]
     Indication: HEART TRANSPLANT
  2. ENOXAPARIN [Concomitant]
     Indication: RESTRICTIVE PULMONARY DISEASE

REACTIONS (2)
  - DYSPNOEA [None]
  - TACHYPNOEA [None]
